FAERS Safety Report 20882464 (Version 1)
Quarter: 2022Q2

REPORT INFORMATION
  Report Type: Spontaneous
  Country: US (occurrence: US)
  Receive Date: 20220527
  Receipt Date: 20220527
  Transmission Date: 20220721
  Serious: Yes (Other)
  Sender: FDA-Public Use
  Company Number: US-CELGENE-USA-20211200867

PATIENT
  Age: 65 Year
  Sex: Male

DRUGS (3)
  1. REVLIMID [Suspect]
     Active Substance: LENALIDOMIDE
     Indication: Plasma cell myeloma
     Dosage: 20 MILLIGRAM
     Route: 048
     Dates: start: 20210706
  2. REVLIMID [Suspect]
     Active Substance: LENALIDOMIDE
     Indication: Follicular lymphoma
  3. REVLIMID [Suspect]
     Active Substance: LENALIDOMIDE

REACTIONS (15)
  - Memory impairment [Unknown]
  - Pneumonia [Unknown]
  - Device related infection [Unknown]
  - Dry eye [Unknown]
  - Eye discharge [Unknown]
  - Fatigue [Unknown]
  - Rash [Unknown]
  - Peripheral swelling [Unknown]
  - Dry skin [Unknown]
  - Constipation [Unknown]
  - Diarrhoea [Unknown]
  - Joint swelling [Unknown]
  - Localised infection [Unknown]
  - Localised infection [Unknown]
  - Neuropathy peripheral [Unknown]

NARRATIVE: CASE EVENT DATE: 20210101
